FAERS Safety Report 5972530-2 (Version None)
Quarter: 2008Q4

REPORT INFORMATION
  Report Type: 
  Country: None (occurrence: None)
  Receive Date: 20081201
  Receipt Date: 20081117
  Transmission Date: 20090506
  Serious: Yes (Other)
  Sender: FDA-Public Use
  Company Number: B0546623A

PATIENT
  Age: 76 Year
  Sex: Male

DRUGS (6)
  1. AUGMENTIN '125' [Suspect]
     Dosage: 3G PER DAY
     Route: 042
     Dates: start: 20080621, end: 20080626
  2. DILTIAZEM HCL [Concomitant]
  3. ASPEGIC 325 [Concomitant]
     Dosage: 250MG PER DAY
     Dates: start: 20080621, end: 20080711
  4. KEPPRA [Concomitant]
     Dates: start: 20080621, end: 20080711
  5. INIPOMP [Concomitant]
     Dates: start: 20080621, end: 20080711
  6. LOVENOX [Concomitant]
     Dosage: .4ML PER DAY
     Dates: start: 20080621, end: 20080711

REACTIONS (1)
  - HYPOPROTHROMBINAEMIA [None]
